FAERS Safety Report 9271557 (Version 2)
Quarter: 2013Q2

REPORT INFORMATION
  Report Type: Spontaneous
  Country: US (occurrence: US)
  Receive Date: 20130506
  Receipt Date: 20130605
  Transmission Date: 20140414
  Serious: Yes (Other)
  Sender: FDA-Public Use
  Company Number: US-PFIZER INC-2013136276

PATIENT
  Age: 47 Year
  Sex: Female

DRUGS (2)
  1. DILANTIN-125 [Suspect]
     Indication: EPILEPSY
     Dosage: 300 MG DAILY ON ODD DAYS AND 400 MG DAILY ON EVEN DAYS
  2. PHENOBARBITAL [Concomitant]
     Indication: EPILEPSY
     Dosage: 90 MG, 1X/DAY

REACTIONS (1)
  - Pulmonary thrombosis [Unknown]
